FAERS Safety Report 21480062 (Version 1)
Quarter: 2022Q4

REPORT INFORMATION
  Report Type: Spontaneous
  Country: CN (occurrence: CN)
  Receive Date: 20221019
  Receipt Date: 20221019
  Transmission Date: 20230113
  Serious: Yes (Other)
  Sender: FDA-Public Use
  Company Number: CN-BAYER-2022A142284

PATIENT
  Age: 26 Year
  Sex: Male
  Weight: 48 kg

DRUGS (5)
  1. MOXIFLOXACIN [Suspect]
     Active Substance: MOXIFLOXACIN
  2. BEDAQUILINE [Concomitant]
     Active Substance: BEDAQUILINE
  3. LINEZOLID [Concomitant]
     Active Substance: LINEZOLID
  4. CYCLOSERINE [Concomitant]
     Active Substance: CYCLOSERINE
  5. CLOFAZIMINE [Concomitant]
     Active Substance: CLOFAZIMINE

REACTIONS (2)
  - Pathogen resistance [None]
  - Off label use [None]
